FAERS Safety Report 9836025 (Version 2)
Quarter: 2014Q2

REPORT INFORMATION
  Report Type: Spontaneous
  Country: IT (occurrence: IT)
  Receive Date: 20140122
  Receipt Date: 20140402
  Transmission Date: 20141212
  Serious: Yes (Hospitalization)
  Sender: FDA-Public Use
  Company Number: IT-BRISTOL-MYERS SQUIBB COMPANY-20034260

PATIENT
  Age: 94 Year
  Sex: Female

DRUGS (3)
  1. COUMADIN TABS 5 MG [Suspect]
     Indication: ATRIAL FIBRILLATION
     Dosage: 1DF: 1/UNIT?INTERRUPTED: 12-OCT-2013.
     Route: 048
     Dates: start: 20130101
  2. EUTIROX [Concomitant]
     Route: 048
  3. TRIATEC [Concomitant]
     Route: 048

REACTIONS (2)
  - Presyncope [Unknown]
  - Rectal haemorrhage [Unknown]
